FAERS Safety Report 22586631 (Version 1)
Quarter: 2023Q2

REPORT INFORMATION
  Report Type: Spontaneous
  Country: US (occurrence: US)
  Receive Date: 20230611
  Receipt Date: 20230611
  Transmission Date: 20230722
  Serious: No
  Sender: FDA-Public Use
  Company Number: US-PERRIGO-23US001093

PATIENT
  Age: 65 Year
  Sex: Female
  Weight: 71.202 kg

DRUGS (4)
  1. DICLOFENAC SODIUM [Suspect]
     Active Substance: DICLOFENAC SODIUM
     Indication: Pain in extremity
     Dosage: 4 G. THREE TIMES
     Route: 061
     Dates: start: 20230122, end: 20230122
  2. LEVOTHYROXINE [Concomitant]
     Active Substance: LEVOTHYROXINE
     Indication: Hypothyroidism
     Dosage: UNK
     Route: 065
  3. METOPROLOL [Concomitant]
     Active Substance: METOPROLOL
     Indication: Hypertension
     Dosage: UNK
     Route: 065
  4. ROSUVASTATIN [Concomitant]
     Active Substance: ROSUVASTATIN
     Indication: Blood cholesterol increased
     Dosage: UNK
     Route: 065

REACTIONS (2)
  - Drug ineffective [Unknown]
  - Product administered at inappropriate site [Unknown]

NARRATIVE: CASE EVENT DATE: 20230122
